FAERS Safety Report 9972703 (Version 1)
Quarter: 2014Q1

REPORT INFORMATION
  Report Type: Spontaneous
  Country: US (occurrence: US)
  Receive Date: 20140306
  Receipt Date: 20140306
  Transmission Date: 20141002
  Serious: Yes (Other)
  Sender: FDA-Public Use
  Company Number: US-JNJFOC-20140218017

PATIENT
  Age: 74 Year
  Sex: Female
  Weight: 117.94 kg

DRUGS (9)
  1. XARELTO [Suspect]
     Indication: CEREBROVASCULAR ACCIDENT PROPHYLAXIS
     Dosage: WITH EVENING MEAL
     Route: 048
     Dates: start: 2013
  2. XARELTO [Suspect]
     Indication: ATRIAL FIBRILLATION
     Dosage: WITH EVENING MEAL
     Route: 048
     Dates: start: 2013
  3. HYDROCHLOROTHIAZIDE [Suspect]
     Indication: DIURETIC THERAPY
     Dosage: STARTED PRIOR TO 2004
     Route: 048
     Dates: end: 201311
  4. CARTIA XT [Concomitant]
     Indication: ATRIAL FIBRILLATION
     Dosage: STARTED 3 YEARS AGO
     Route: 048
  5. METOPROLOL [Concomitant]
     Indication: BLOOD PRESSURE
     Dosage: STARTED PRIOR TO 2004
     Route: 048
  6. PROZAC [Concomitant]
     Indication: DEPRESSION
     Route: 048
     Dates: start: 2009
  7. LORTAB [Concomitant]
     Indication: ARTHRITIS
     Route: 048
     Dates: start: 2007
  8. LORTAB [Concomitant]
     Indication: ARTHRITIS
     Route: 048
  9. ASPIRIN [Concomitant]
     Indication: ATRIAL FIBRILLATION
     Route: 048
     Dates: start: 2007

REACTIONS (6)
  - Fall [Recovered/Resolved]
  - Loss of consciousness [Recovered/Resolved]
  - Urinary incontinence [Not Recovered/Not Resolved]
  - Dental caries [Not Recovered/Not Resolved]
  - Arthralgia [Recovering/Resolving]
  - Pain in extremity [Recovering/Resolving]
